FAERS Safety Report 9149912 (Version 1)
Quarter: 2013Q1

REPORT INFORMATION
  Report Type: Spontaneous
  Country: CH (occurrence: CH)
  Receive Date: 20130308
  Receipt Date: 20130308
  Transmission Date: 20140127
  Serious: Yes (Hospitalization, Other)
  Sender: FDA-Public Use
  Company Number: CH-009507513-1303CHE002906

PATIENT
  Age: 60 Year
  Sex: Male

DRUGS (11)
  1. JANUMET [Suspect]
     Indication: TYPE 2 DIABETES MELLITUS
     Dosage: 50/1000 MG, BID
     Route: 048
     Dates: end: 20130117
  2. LANTUS [Concomitant]
     Dosage: 40 IU, QD
     Route: 058
     Dates: end: 20130117
  3. SERTRALINE HYDROCHLORIDE [Concomitant]
     Dosage: 50 MG, 1 PER 2 DAYS
     Route: 048
  4. DOGMATIL [Concomitant]
     Dosage: 200 MG, QD
     Route: 048
  5. SINTROM [Concomitant]
     Dosage: 1 MG, PRN
     Route: 048
  6. DIGOXIN [Concomitant]
     Dosage: 0.25 MG, Q12H
     Route: 048
     Dates: end: 20130117
  7. CONCOR [Concomitant]
     Dosage: 5 MG, BID
     Route: 048
  8. ALDACTONE TABLETS [Concomitant]
     Dosage: 25 MG, QD
     Route: 048
  9. CO-ENATEC [Concomitant]
     Dosage: 20 MG, QD
     Route: 048
  10. CADUET [Concomitant]
     Dosage: 5 MG, QD
     Route: 048
  11. TRANXILIUM [Concomitant]
     Dosage: 20 MG, QD
     Route: 048

REACTIONS (4)
  - Amylase increased [Recovered/Resolved]
  - Lipase increased [Recovered/Resolved]
  - Pancreatitis acute [Recovered/Resolved]
  - Abdominal pain [Recovered/Resolved]
